FAERS Safety Report 18874086 (Version 1)
Quarter: 2021Q1

REPORT INFORMATION
  Report Type: Spontaneous
  Country: BR (occurrence: BR)
  Receive Date: 20210210
  Receipt Date: 20210210
  Transmission Date: 20210420
  Serious: Yes (Hospitalization)
  Sender: FDA-Public Use
  Company Number: BR-BAYER-2021-058063

PATIENT

DRUGS (3)
  1. FLANAX 24H [NAPROXEN SODIUM] [Suspect]
     Active Substance: NAPROXEN SODIUM
  2. ETANERCEPT [Suspect]
     Active Substance: ETANERCEPT
  3. METHOTREXATE. [Suspect]
     Active Substance: METHOTREXATE

REACTIONS (1)
  - Arthritis [None]

NARRATIVE: CASE EVENT DATE: 201708
